FAERS Safety Report 21161557 (Version 1)
Quarter: 2022Q3

REPORT INFORMATION
  Report Type: Spontaneous
  Country: ES (occurrence: ES)
  Receive Date: 20220802
  Receipt Date: 20220802
  Transmission Date: 20221027
  Serious: Yes (Other)
  Sender: FDA-Public Use
  Company Number: None

PATIENT
  Age: 78 Year
  Sex: Female

DRUGS (3)
  1. DAPTOMYCIN [Suspect]
     Active Substance: DAPTOMYCIN
     Indication: Respiratory tract infection
     Dosage: 500 MG, 1X/DAY
     Route: 042
     Dates: start: 20220105, end: 20220113
  2. DOXYCYCLINE HYCLATE [Suspect]
     Active Substance: DOXYCYCLINE HYCLATE
     Indication: Respiratory tract infection
     Dosage: 200 MG, 2X/DAY
     Route: 048
     Dates: start: 20220107, end: 20220113
  3. PIPERACILLIN SODIUM\TAZOBACTAM SODIUM [Suspect]
     Active Substance: PIPERACILLIN SODIUM\TAZOBACTAM SODIUM
     Indication: Respiratory tract infection
     Dosage: 1 DF, 4X/DAY
     Route: 042
     Dates: start: 20211212, end: 20220112

REACTIONS (2)
  - Rash macular [Recovered/Resolved]
  - Off label use [Unknown]

NARRATIVE: CASE EVENT DATE: 20220105
